FAERS Safety Report 6315573-1 (Version None)
Quarter: 2009Q3

REPORT INFORMATION
  Report Type: 
  Country: None (occurrence: None)
  Receive Date: 20090818
  Receipt Date: 20090730
  Transmission Date: 20100115
  Serious: Yes (Death)
  Sender: FDA-Public Use
  Company Number: 002440

PATIENT
  Age: 67 Year
  Sex: Male
  Weight: 69 kg

DRUGS (10)
  1. PEGAPTANIB SODIUM; PLACEBO (PEGATANIB SODIUM) [Suspect]
     Dosage: 1 EVERY 6 WEEKS
     Dates: start: 20070831, end: 20071129
  2. GLICLAZIDE (GLICLAZIDE) [Concomitant]
  3. AMLODIPINE [Concomitant]
  4. INSULIN MIXTARD (INSULIN INJECTION, ISOPHANE) [Concomitant]
  5. TELMISARTAN [Concomitant]
  6. ALL OTHER THERAPEUTIC PRODUCTS EYE DROPS [Concomitant]
  7. OFLOXACIN (OFLOXACIN) EYE DROPS [Concomitant]
  8. PROPARACAINE (PROXYMETACAINE) EYE DROPS [Concomitant]
  9. POVIDONE-IODINE (POVIDONE-IODINE) EYE DROPS [Concomitant]
  10. LIDOCAINE [Concomitant]

REACTIONS (1)
  - SUDDEN DEATH [None]
